FAERS Safety Report 5721420-9 (Version None)
Quarter: 2008Q2

REPORT INFORMATION
  Report Type: 
  Country: None (occurrence: None)
  Receive Date: 20080429
  Receipt Date: 20080417
  Transmission Date: 20081010
  Serious: Yes (Disabling)
  Sender: FDA-Public Use
  Company Number: GB-JNJFOC-20080404509

PATIENT
  Age: 64 Year
  Sex: Female

DRUGS (3)
  1. LEVOFLOXACIN [Suspect]
     Indication: PNEUMONIA
     Route: 048
  2. CLARITHROMYCIN [Concomitant]
     Indication: PNEUMONIA
     Route: 048
  3. AMOXICILLIN + CLAVULANATE POTASSIUM [Concomitant]
     Indication: PNEUMONIA
     Route: 048

REACTIONS (2)
  - LIGAMENT DISORDER [None]
  - PAIN [None]
